FAERS Safety Report 15753147 (Version 2)
Quarter: 2019Q1

REPORT INFORMATION
  Report Type: Spontaneous
  Country: NL (occurrence: NL)
  Receive Date: 20181222
  Receipt Date: 20190102
  Transmission Date: 20190417
  Serious: Yes (Hospitalization)
  Sender: FDA-Public Use
  Company Number: NL-AUROBINDO-AUR-APL-2018-060098

PATIENT
  Age: 80 Year
  Sex: Male
  Weight: 71 kg

DRUGS (1)
  1. FINASTERIDE AUROBINDO 5MG FILM COATED TABLETS [Suspect]
     Active Substance: FINASTERIDE
     Indication: PROSTATIC DISORDER
     Dosage: UNK
     Route: 048
     Dates: start: 20080203

REACTIONS (2)
  - Loss of libido [Recovering/Resolving]
  - Hepatic function abnormal [Recovering/Resolving]

NARRATIVE: CASE EVENT DATE: 20161231
